FAERS Safety Report 5053279-X (Version None)
Quarter: 2006Q3

REPORT INFORMATION
  Report Type: 
  Country: None (occurrence: None)
  Receive Date: 20060712
  Receipt Date: 20060626
  Transmission Date: 20061208
  Serious: Yes (Hospitalization)
  Sender: FDA-Public Use
  Company Number: 2006RR-02828

PATIENT
  Age: 58 Year
  Sex: Male

DRUGS (3)
  1. SIMVASTATIN [Suspect]
     Indication: HYPERCHOLESTEROLAEMIA
     Dosage: 40 MG, ORAL
     Route: 048
  2. ASPIRIN [Suspect]
     Dosage: 100 MG, QD
  3. INSULIN [Concomitant]

REACTIONS (5)
  - ABDOMINAL PAIN UPPER [None]
  - GASTRODUODENITIS [None]
  - PANCREATITIS ACUTE [None]
  - ULCER [None]
  - VOMITING [None]
